FAERS Safety Report 4961761-6 (Version None)
Quarter: 2006Q1

REPORT INFORMATION
  Report Type: 
  Country: None (occurrence: None)
  Receive Date: 20060329
  Receipt Date: 20060316
  Transmission Date: 20060701
  Serious: Yes (Life-Threatening, Hospitalization)
  Sender: FDA-Public Use
  Company Number: 2006EU000948

PATIENT
  Age: 61 Year
  Sex: Male
  Weight: 79 kg

DRUGS (9)
  1. TACROLIMUS (TACROLIMUS) [Suspect]
     Dosage: 0.0 MG, UNKNOWN/D, UNK
     Route: 065
     Dates: end: 20051214
  2. TACROLIMUS (TACROLIMUS) [Suspect]
     Dosage: 0.0 MG, UNKNOWN/D, UNK
     Route: 065
     Dates: start: 20051215, end: 20060223
  3. POSACONAZOLE [Suspect]
     Indication: FUNGAL INFECTION
     Dosage: 200 MG, QID, ORAL
     Route: 048
     Dates: start: 20051103
  4. ACYCLOVIR [Suspect]
     Dosage: 0.0 MG, UNKNOWN/D, UNK
     Route: 065
     Dates: end: 20051220
  5. ACYCLOVIR [Suspect]
     Dosage: 0.0 MG, UNKNOWN/D, UNK
     Route: 065
     Dates: start: 20051221, end: 20060223
  6. SANDIMMUNE [Concomitant]
  7. DECORTIN (PREDNISONE) [Concomitant]
  8. CELLCEPT [Concomitant]
  9. GANCICLOVIR SODIUM [Concomitant]

REACTIONS (16)
  - BRONCHOPULMONARY ASPERGILLOSIS [None]
  - CONDITION AGGRAVATED [None]
  - CONVULSION [None]
  - CREATININE RENAL CLEARANCE DECREASED [None]
  - CYSTITIS [None]
  - CYTOMEGALOVIRUS INFECTION [None]
  - DISEASE RECURRENCE [None]
  - DRY SKIN [None]
  - EPSTEIN-BARR VIRUS INFECTION [None]
  - GASTRIC ULCER [None]
  - GRAFT VERSUS HOST DISEASE [None]
  - HAEMATEMESIS [None]
  - HUMAN HERPESVIRUS 6 INFECTION [None]
  - LEUKOPENIA [None]
  - NEPHROPATHY TOXIC [None]
  - RENAL FAILURE CHRONIC [None]
